FAERS Safety Report 13385339 (Version 1)
Quarter: 2017Q1

REPORT INFORMATION
  Report Type: Spontaneous
  Country: US (occurrence: US)
  Receive Date: 20170330
  Receipt Date: 20170330
  Transmission Date: 20170429
  Serious: No
  Sender: FDA-Public Use
  Company Number: None

PATIENT
  Sex: Female

DRUGS (2)
  1. VENLAFAXINE ER CAPSULES 75MG TEVA PHARMACEUTICALS [Suspect]
     Active Substance: VENLAFAXINE HYDROCHLORIDE
     Dates: start: 20170113, end: 20170222
  2. VENLAFAXINE ER CAPSULES 150MG TEVA PHARMACEUTICALS [Suspect]
     Active Substance: DESVENLAFAXINE

REACTIONS (6)
  - Rash [None]
  - Nausea [None]
  - Abdominal pain [None]
  - Diarrhoea [None]
  - Medication residue present [None]
  - Proctalgia [None]
